FAERS Safety Report 16149643 (Version 2)
Quarter: 2019Q2

REPORT INFORMATION
  Report Type: Spontaneous
  Country: US (occurrence: US)
  Receive Date: 20190402
  Receipt Date: 20190619
  Transmission Date: 20190711
  Serious: No
  Sender: FDA-Public Use
  Company Number: US-BAUSCH-BL-2019-008898

PATIENT
  Sex: Female

DRUGS (1)
  1. METROGEL VAGINAL [Suspect]
     Active Substance: METRONIDAZOLE
     Indication: VAGINAL DISORDER
     Dosage: 1 APPLICATOR, ONCE A DAY FOR 5 DAYS
     Route: 067
     Dates: start: 201903

REACTIONS (2)
  - Drug ineffective [Unknown]
  - Vaginal discharge [Not Recovered/Not Resolved]

NARRATIVE: CASE EVENT DATE: 2019
